FAERS Safety Report 18142971 (Version 2)
Quarter: 2020Q3

REPORT INFORMATION
  Report Type: Spontaneous
  Country: US (occurrence: US)
  Receive Date: 20200812
  Receipt Date: 20200825
  Transmission Date: 20201103
  Serious: No
  Sender: FDA-Public Use
  Company Number: US-ALKERMES INC.-ALK-2020-003241

PATIENT
  Sex: Female

DRUGS (2)
  1. VIVITROL [Suspect]
     Active Substance: NALTREXONE
     Dosage: 380 MILLIGRAM, QMO
     Route: 030
  2. VIVITROL [Suspect]
     Active Substance: NALTREXONE
     Indication: DRUG DEPENDENCE
     Dosage: 380 MILLIGRAM, QMO
     Route: 030
     Dates: start: 20200727, end: 20200727

REACTIONS (4)
  - Alcohol use [Not Recovered/Not Resolved]
  - Dependence [Not Recovered/Not Resolved]
  - Hepatitis chronic active [Not Recovered/Not Resolved]
  - Substance use [Not Recovered/Not Resolved]

NARRATIVE: CASE EVENT DATE: 2020
